FAERS Safety Report 13245728 (Version 1)
Quarter: 2017Q1

REPORT INFORMATION
  Report Type: Spontaneous
  Country: PL (occurrence: PL)
  Receive Date: 20170217
  Receipt Date: 20170217
  Transmission Date: 20170428
  Serious: Yes (Other)
  Sender: FDA-Public Use
  Company Number: PL-ROCHE-1893104

PATIENT
  Sex: Female

DRUGS (2)
  1. ZELBORAF [Suspect]
     Active Substance: VEMURAFENIB
     Indication: MALIGNANT MELANOMA
     Dosage: 4 TAB. IN THE MORNING, 4 TAB. IN THE EVENING
     Route: 065
  2. ZELBORAF [Suspect]
     Active Substance: VEMURAFENIB
     Dosage: 3 TAB. IN THE MORNING, 3 TAB. IN THE EVENING
     Route: 065
     Dates: end: 201606

REACTIONS (8)
  - Dry mouth [Recovered/Resolved]
  - Dry skin [Recovered/Resolved]
  - Oropharyngeal pain [Recovered/Resolved]
  - Rash generalised [Recovered/Resolved]
  - Liver injury [Recovered/Resolved]
  - Skin exfoliation [Recovered/Resolved]
  - Rash [Recovered/Resolved]
  - Mood altered [Recovered/Resolved]
